FAERS Safety Report 4830795-4 (Version None)
Quarter: 2005Q4

REPORT INFORMATION
  Report Type: 
  Country: None (occurrence: None)
  Receive Date: 20051117
  Receipt Date: 20051102
  Transmission Date: 20060501
  Serious: Yes (Other)
  Sender: FDA-Public Use
  Company Number: JP-MERCK-0511USA00861

PATIENT
  Age: 79 Year
  Sex: Female
  Weight: 43 kg

DRUGS (12)
  1. PRIMAXIN [Suspect]
     Indication: LUNG INFECTION
     Route: 042
     Dates: start: 20051027, end: 20051101
  2. CLINDAMYCIN PHOSPHATE [Concomitant]
     Indication: LUNG INFECTION
     Route: 042
     Dates: start: 20051027, end: 20051101
  3. VOLTAREN [Suspect]
     Indication: ANTIPYRESIS
     Route: 054
     Dates: start: 20051027, end: 20051028
  4. [COMPOSITION UNSPECIFIED] [Concomitant]
     Indication: FLUID REPLACEMENT
     Route: 042
     Dates: start: 20051029, end: 20051029
  5. [COMPOSITION UNSPECIFIED] [Concomitant]
     Route: 042
     Dates: start: 20051030, end: 20051031
  6. LOXONIN [Suspect]
     Indication: ANTIPYRESIS
     Route: 048
     Dates: start: 20051101, end: 20051102
  7. MUCOSTA [Concomitant]
     Indication: PROPHYLAXIS AGAINST GASTROINTESTINAL ULCER
     Route: 048
     Dates: start: 20051101, end: 20051102
  8. SODIUM CHLORIDE [Concomitant]
     Indication: FLUID REPLACEMENT
     Route: 042
     Dates: start: 20051027, end: 20051101
  9. SODIUM CHLORIDE [Concomitant]
     Route: 042
     Dates: start: 20051029
  10. SODIUM CHLORIDE [Concomitant]
     Route: 042
     Dates: start: 20051102
  11. TUBERCULIN PURIFIED PROTEIN DERIVATIVE [Concomitant]
     Indication: TUBERCULIN TEST
     Route: 051
     Dates: start: 20051101, end: 20051101
  12. NEOLAMIN 3B INTRAVENOUS [Concomitant]
     Indication: VITAMIN SUPPLEMENTATION
     Route: 042
     Dates: start: 20051029, end: 20051030

REACTIONS (2)
  - DISORIENTATION [None]
  - STATUS EPILEPTICUS [None]
